FAERS Safety Report 6588329-2 (Version None)
Quarter: 2010Q1

REPORT INFORMATION
  Report Type: 
  Country: None (occurrence: None)
  Receive Date: 20100218
  Receipt Date: 20100129
  Transmission Date: 20100710
  Serious: Yes (Hospitalization)
  Sender: FDA-Public Use
  Company Number: JP-ROCHE-668592

PATIENT
  Sex: Male
  Weight: 59 kg

DRUGS (2)
  1. AVASTIN [Suspect]
     Indication: RETINAL VEIN OCCLUSION
     Route: 031
     Dates: start: 20090108, end: 20090108
  2. AVASTIN [Suspect]
     Route: 031
     Dates: start: 20090414, end: 20091014

REACTIONS (1)
  - ENDOPHTHALMITIS [None]
